FAERS Safety Report 12935928 (Version 1)
Quarter: 2016Q4

REPORT INFORMATION
  Report Type: Spontaneous
  Country: US (occurrence: US)
  Receive Date: 20161111
  Receipt Date: 20161111
  Transmission Date: 20170207
  Serious: Yes (Other)
  Sender: FDA-Public Use
  Company Number: None

PATIENT
  Age: 54 Year
  Sex: Male

DRUGS (12)
  1. AMPYRA [Suspect]
     Active Substance: DALFAMPRIDINE
     Indication: MULTIPLE SCLEROSIS
     Route: 048
     Dates: start: 201006
  2. SUMATRIPTAN. [Concomitant]
     Active Substance: SUMATRIPTAN
  3. ATORVASTATIN 10 MG [Concomitant]
     Active Substance: ATORVASTATIN
  4. METFORMIN [Concomitant]
     Active Substance: METFORMIN HYDROCHLORIDE
  5. LISINOPRIL. [Concomitant]
     Active Substance: LISINOPRIL
  6. TAMOSULIN [Concomitant]
  7. NOT LEGIBLE [Concomitant]
  8. ERGOCALCIFEROL 50,000 UNITS [Concomitant]
  9. BACLOFEN. [Concomitant]
     Active Substance: BACLOFEN
  10. GLIPIZIDE. [Concomitant]
     Active Substance: GLIPIZIDE
  11. FUROSEMIDE 20-40 MG DAILY [Concomitant]
  12. NOPRIL 2.5 MG [Concomitant]

REACTIONS (2)
  - Skin ulcer [None]
  - Staphylococcal infection [None]

NARRATIVE: CASE EVENT DATE: 20161018
